FAERS Safety Report 6258388-5 (Version None)
Quarter: 2009Q3

REPORT INFORMATION
  Report Type: 
  Country: None (occurrence: None)
  Receive Date: 20090702
  Receipt Date: 20090702
  Transmission Date: 20100115
  Serious: Yes (Hospitalization, Other)
  Sender: FDA-Public Use
  Company Number: None

PATIENT
  Age: 40 Year
  Sex: Female
  Weight: 77.1115 kg

DRUGS (1)
  1. LEVAQUIN [Suspect]
     Indication: SKIN BACTERIAL INFECTION
     Dosage: 750MG 1X ONLY PO
     Route: 048
     Dates: start: 20090626, end: 20090626

REACTIONS (6)
  - FEELING ABNORMAL [None]
  - INFLUENZA [None]
  - INSOMNIA [None]
  - PARAESTHESIA [None]
  - PYREXIA [None]
  - TREMOR [None]
